FAERS Safety Report 11258380 (Version 1)
Quarter: 2015Q3

REPORT INFORMATION
  Report Type: Spontaneous
  Country: US (occurrence: US)
  Receive Date: 20150710
  Receipt Date: 20150710
  Transmission Date: 20151125
  Serious: Yes (Other)
  Sender: FDA-Public Use
  Company Number: US-ELI_LILLY_AND_COMPANY-US201505004978

PATIENT
  Age: 62 Year
  Sex: Female
  Weight: 66.67 kg

DRUGS (15)
  1. ADVAIR HFA [Concomitant]
     Active Substance: FLUTICASONE PROPIONATE\SALMETEROL XINAFOATE
  2. DUONEB [Concomitant]
     Active Substance: ALBUTEROL SULFATE\IPRATROPIUM BROMIDE
  3. ENOXAPARIN [Concomitant]
     Active Substance: ENOXAPARIN
  4. AZITHROMYCIN [Concomitant]
     Active Substance: AZITHROMYCIN ANHYDROUS
  5. CEFTRIAXONE. [Concomitant]
     Active Substance: CEFTRIAXONE
  6. FAMOTIDINE. [Concomitant]
     Active Substance: FAMOTIDINE
  7. INSULIN HUMAN [Suspect]
     Active Substance: INSULIN HUMAN
     Indication: TYPE 2 DIABETES MELLITUS
     Dosage: 18 U, BID
     Route: 058
     Dates: start: 20141126, end: 20141127
  8. INSULIN HUMAN [Suspect]
     Active Substance: INSULIN HUMAN
     Dosage: 18 U, BID
     Route: 058
     Dates: start: 20141127
  9. MONTELUKAST [Concomitant]
     Active Substance: MONTELUKAST SODIUM
  10. NYSTATIN. [Concomitant]
     Active Substance: NYSTATIN
  11. LASIX [Concomitant]
     Active Substance: FUROSEMIDE
  12. METHYLPREDNISOLONE. [Suspect]
     Active Substance: METHYLPREDNISOLONE
     Indication: PRODUCT USED FOR UNKNOWN INDICATION
     Route: 065
  13. ALBUTEROL                          /00139501/ [Concomitant]
     Active Substance: ALBUTEROL
  14. LORAZEPAM. [Concomitant]
     Active Substance: LORAZEPAM
  15. ZOLPIDEM [Concomitant]
     Active Substance: ZOLPIDEM\ZOLPIDEM TARTRATE

REACTIONS (2)
  - Underdose [Recovered/Resolved]
  - Hyperglycaemia [Recovered/Resolved]

NARRATIVE: CASE EVENT DATE: 20141127
